FAERS Safety Report 9620107 (Version 1)
Quarter: 2013Q4

REPORT INFORMATION
  Report Type: Spontaneous
  Country: US (occurrence: US)
  Receive Date: 20131014
  Receipt Date: 20131014
  Transmission Date: 20140711
  Serious: Yes (Other)
  Sender: FDA-Public Use
  Company Number: US-GLAXOSMITHKLINE-A1044898A

PATIENT
  Age: 31 Year
  Sex: Female

DRUGS (3)
  1. ADVAIR [Suspect]
     Indication: ASTHMA
     Dosage: 1PUFF TWICE PER DAY
     Route: 055
     Dates: start: 201307
  2. PRO-AIR [Concomitant]
  3. MULTIVITAMIN [Concomitant]

REACTIONS (11)
  - Suicidal ideation [Not Recovered/Not Resolved]
  - Anxiety [Not Recovered/Not Resolved]
  - Depressive symptom [Not Recovered/Not Resolved]
  - Lethargy [Not Recovered/Not Resolved]
  - Energy increased [Unknown]
  - Asthenia [Unknown]
  - Fatigue [Unknown]
  - Initial insomnia [Unknown]
  - Headache [Unknown]
  - Malaise [Unknown]
  - Decreased activity [Unknown]
